FAERS Safety Report 25078214 (Version 1)
Quarter: 2025Q1

REPORT INFORMATION
  Report Type: Spontaneous
  Country: US (occurrence: None)
  Receive Date: 20250313
  Receipt Date: 20250313
  Transmission Date: 20250409
  Serious: No
  Sender: FDA-CTU
  Company Number: None

PATIENT
  Age: 79 Year
  Sex: Male

DRUGS (1)
  1. DUPIXENT [Suspect]
     Active Substance: DUPILUMAB
     Indication: Dermatitis
     Dosage: OTHER FREQUENCY : EVERY 2 WEEKS;?
     Route: 058

REACTIONS (6)
  - Dyspnoea [None]
  - Wheezing [None]
  - Pain in extremity [None]
  - Arthralgia [None]
  - Arthralgia [None]
  - Dry eye [None]

NARRATIVE: CASE EVENT DATE: 20250218
